FAERS Safety Report 19240052 (Version 3)
Quarter: 2021Q3

REPORT INFORMATION
  Report Type: Spontaneous
  Country: GB (occurrence: GB)
  Receive Date: 20210510
  Receipt Date: 20210804
  Transmission Date: 20211014
  Serious: Yes (Hospitalization, Disabling)
  Sender: FDA-Public Use
  Company Number: GB-PFIZER INC-2021479179

PATIENT
  Age: 58 Year
  Sex: Female
  Weight: 79.5 kg

DRUGS (3)
  1. ASTRAZENECA COVID?19 VACCINE [Suspect]
     Active Substance: AZD-1222
     Indication: COVID-19 IMMUNISATION
     Dosage: 1 DF, SINGLE
     Dates: start: 20210421, end: 20210421
  2. LETROZOLE. [Concomitant]
     Active Substance: LETROZOLE
     Indication: BREAST CANCER
     Dosage: 2.5 MG
     Dates: start: 202102
  3. IBRANCE [Suspect]
     Active Substance: PALBOCICLIB
     Indication: BREAST CANCER METASTATIC
     Dosage: 125 MG, 1X/DAY
     Route: 048
     Dates: start: 20210415, end: 20210427

REACTIONS (2)
  - Cerebrovascular accident [Recovered/Resolved with Sequelae]
  - Muscular weakness [Not Recovered/Not Resolved]

NARRATIVE: CASE EVENT DATE: 20210424
